FAERS Safety Report 5265866-4 (Version None)
Quarter: 2007Q1

REPORT INFORMATION
  Report Type: 
  Country: None (occurrence: None)
  Receive Date: 20070312
  Receipt Date: 20070312
  Transmission Date: 20070707
  Serious: Yes (Life-Threatening)
  Sender: FDA-Public Use
  Company Number: None

PATIENT
  Age: 41 Year
  Sex: Male

DRUGS (1)
  1. PHYTONADIONE [Suspect]
     Indication: PROCOAGULANT THERAPY
     Dosage: 10 MG ONCE IV BOLUS    ONE DOSE
     Route: 040

REACTIONS (4)
  - AGITATION [None]
  - ANAPHYLACTIC REACTION [None]
  - CYANOSIS [None]
  - HYPOXIA [None]
